FAERS Safety Report 9223798 (Version 2)
Quarter: 2013Q2

REPORT INFORMATION
  Report Type: Spontaneous
  Country: AU (occurrence: AU)
  Receive Date: 20130410
  Receipt Date: 20130528
  Transmission Date: 20140414
  Serious: Yes (Death, Hospitalization)
  Sender: FDA-Public Use
  Company Number: AU-B.I. PHARMACEUTICALS,INC./RIDGEFIELD-2013-AU-00427AU

PATIENT
  Sex: Male

DRUGS (17)
  1. PRADAXA [Suspect]
     Dosage: 220 MG
     Dates: start: 20120816
  2. AMIODARONE [Concomitant]
  3. ASTRIX [Concomitant]
  4. BISOPROLOL [Concomitant]
  5. DIABEX [Concomitant]
  6. FRUSEMIDE [Concomitant]
  7. GLICLAZIDE [Concomitant]
  8. ATORVASTATIN [Concomitant]
  9. PARIET [Concomitant]
  10. PERHEXILINE [Concomitant]
  11. QUINAPRIL [Concomitant]
  12. VENTOLIN [Concomitant]
  13. FLIXOTIDE [Concomitant]
  14. VESICARE [Concomitant]
  15. PARACETAMOL [Concomitant]
  16. FERROGRADUMET [Concomitant]
  17. MAXOLON [Concomitant]

REACTIONS (2)
  - Coronary artery occlusion [Fatal]
  - Urinary tract infection [Recovered/Resolved]
